FAERS Safety Report 5046631-X (Version None)
Quarter: 2006Q3

REPORT INFORMATION
  Report Type: 
  Country: None (occurrence: None)
  Receive Date: 20060707
  Receipt Date: 20060707
  Transmission Date: 20061208
  Serious: Yes (Hospitalization)
  Sender: FDA-Public Use
  Company Number: None

PATIENT
  Age: 35 Year
  Sex: Male

DRUGS (5)
  1. GOODY'S POWDER [Suspect]
     Indication: ARTHRALGIA
     Dosage: ASA 500 MG/APAP 325 BID PO
     Route: 048
  2. IBUPROFEN [Suspect]
     Indication: ARTHRALGIA
     Dosage: 200 MG PO
     Route: 048
  3. RITONAVIR [Concomitant]
  4. LAMIVUDINE MG/BIVALIRUDIN [Concomitant]
  5. ATAZANAVIR [Concomitant]

REACTIONS (4)
  - HAEMATOCRIT DECREASED [None]
  - HAEMOGLOBIN DECREASED [None]
  - MELAENA [None]
  - UPPER GASTROINTESTINAL HAEMORRHAGE [None]
